FAERS Safety Report 18103680 (Version 1)
Quarter: 2020Q3

REPORT INFORMATION
  Report Type: Spontaneous
  Country: JP (occurrence: JP)
  Receive Date: 20200803
  Receipt Date: 20200803
  Transmission Date: 20201103
  Serious: Yes (Hospitalization)
  Sender: FDA-Public Use
  Company Number: NVSC2020JP214764

PATIENT
  Age: 78 Year
  Sex: Female

DRUGS (1)
  1. RECLAST [Suspect]
     Active Substance: ZOLEDRONIC ACID
     Indication: PRODUCT USED FOR UNKNOWN INDICATION
     Dosage: 5 MG, OTHER (ONCE YEARLY)
     Route: 041
     Dates: start: 20170524, end: 20170524

REACTIONS (2)
  - Dementia Alzheimer^s type [Unknown]
  - Bedridden [Unknown]
